FAERS Safety Report 7938839-8 (Version None)
Quarter: 2011Q4

REPORT INFORMATION
  Report Type: 
  Country: None (occurrence: None)
  Receive Date: 20111124
  Receipt Date: 20111118
  Transmission Date: 20120403
  Serious: No
  Sender: FDA-Public Use
  Company Number: US-BIOGENIDEC-2011BI044488

PATIENT
  Age: 33 Year
  Sex: Male

DRUGS (4)
  1. NEURONTIN [Concomitant]
     Indication: BURNING SENSATION
  2. TYSABRI [Suspect]
     Indication: MULTIPLE SCLEROSIS
     Route: 042
     Dates: start: 20110101
  3. CYCLOBENZAPRINE [Concomitant]
     Indication: MUSCLE RELAXANT THERAPY
  4. XANAX [Concomitant]
     Indication: ANXIETY

REACTIONS (8)
  - HALLUCINATION [None]
  - BURNING SENSATION [None]
  - DEPRESSED MOOD [None]
  - EMOTIONAL DISORDER [None]
  - PRURITUS [None]
  - CONFUSIONAL STATE [None]
  - FATIGUE [None]
  - ANXIETY [None]
